FAERS Safety Report 23559874 (Version 1)
Quarter: 2024Q1

REPORT INFORMATION
  Report Type: Spontaneous
  Country: CA (occurrence: CA)
  Receive Date: 20240223
  Receipt Date: 20240223
  Transmission Date: 20240410
  Serious: Yes (Hospitalization)
  Sender: FDA-Public Use
  Company Number: CA-FreseniusKabi-FK202402774

PATIENT
  Age: 81 Year
  Sex: Female

DRUGS (2)
  1. HYDROMORPHONE [Suspect]
     Active Substance: HYDROMORPHONE
     Indication: Pain
     Dosage: FORM OF ADMIN. NOT SPECIFIED?ROUTE OF ADMIN. SUBCUTANEOUS ( SC )
  2. HYDROMORPHONE [Suspect]
     Active Substance: HYDROMORPHONE
     Indication: Pain
     Dosage: FORM OF ADMIN. NOT SPECIFIED?ROUTE OF ADMIN. ORAL ( ORA )

REACTIONS (4)
  - Ileus [Unknown]
  - Intervertebral discitis [Unknown]
  - Pneumonia [Unknown]
  - Septic shock [Unknown]
